FAERS Safety Report 4897687-6 (Version None)
Quarter: 2006Q1

REPORT INFORMATION
  Report Type: 
  Country: None (occurrence: None)
  Receive Date: 20060130
  Receipt Date: 20060130
  Transmission Date: 20060701
  Serious: No
  Sender: FDA-Public Use
  Company Number: None

PATIENT
  Age: 55 Year
  Sex: Male
  Weight: 113.3993 kg

DRUGS (3)
  1. SPIRIVA [Suspect]
     Indication: ASTHMA
     Dosage: 18 MCG ONCE DAILY PO
     Route: 048
     Dates: start: 20060104, end: 20060127
  2. PULMICORT [Concomitant]
  3. ALBUTEROL [Concomitant]

REACTIONS (2)
  - DIZZINESS [None]
  - NAUSEA [None]
